FAERS Safety Report 5472944-3 (Version None)
Quarter: 2007Q4

REPORT INFORMATION
  Report Type: 
  Country: None (occurrence: None)
  Receive Date: 20071001
  Receipt Date: 20070125
  Transmission Date: 20080405
  Serious: No
  Sender: FDA-Public Use
  Company Number: US-ASTRAZENECA-2007UW01588

PATIENT
  Age: 76 Year
  Sex: Female
  Weight: 72.6 kg

DRUGS (4)
  1. ARIMIDEX [Suspect]
     Indication: BREAST CANCER
     Route: 048
     Dates: start: 20061222
  2. LIPITOR [Concomitant]
  3. PAXIL [Concomitant]
  4. MEGACE [Concomitant]
     Indication: BURNING SENSATION

REACTIONS (2)
  - BURNING SENSATION [None]
  - WEIGHT INCREASED [None]
